FAERS Safety Report 9835296 (Version 1)
Quarter: 2014Q1

REPORT INFORMATION
  Report Type: Spontaneous
  Country: US (occurrence: US)
  Receive Date: 20140122
  Receipt Date: 20140122
  Transmission Date: 20141002
  Serious: No
  Sender: FDA-Public Use
  Company Number: US-BRISTOL-MYERS SQUIBB COMPANY-19922673

PATIENT
  Age: 88 Year
  Sex: Female
  Weight: 63.49 kg

DRUGS (4)
  1. ELIQUIS [Suspect]
     Indication: ATRIAL FIBRILLATION
     Dosage: 1DF-HALF IN MRNG AND HALF IN EVENG
  2. WARFARIN SODIUM [Suspect]
  3. LISINOPRIL [Concomitant]
  4. METOPROLOL [Concomitant]

REACTIONS (3)
  - Dyspnoea [Unknown]
  - Contusion [Unknown]
  - Drug administration error [Unknown]
